FAERS Safety Report 8995373 (Version 1)
Quarter: 2013Q1

REPORT INFORMATION
  Report Type: Spontaneous
  Country: US (occurrence: US)
  Receive Date: 20130103
  Receipt Date: 20130103
  Transmission Date: 20140127
  Serious: No
  Sender: FDA-Public Use
  Company Number: US-ABBOTT-12P-163-1002260-00

PATIENT
  Age: 78 Year
  Sex: Female

DRUGS (2)
  1. SYNTHROID [Suspect]
     Indication: HYPOTHYROIDISM
     Dosage: 175MCG DAILY FOR 13 DAYS FOLLOWED BY TWO 175MCG TABLETS.
     Dates: start: 1992, end: 20121026
  2. SYNTHROID [Suspect]
     Dates: start: 20121027

REACTIONS (2)
  - Blood thyroid stimulating hormone increased [Unknown]
  - Psychomotor hyperactivity [Recovered/Resolved]
